FAERS Safety Report 21613450 (Version 1)
Quarter: 2022Q4

REPORT INFORMATION
  Report Type: Spontaneous
  Country: US (occurrence: None)
  Receive Date: 20221117
  Receipt Date: 20221117
  Transmission Date: 20230113
  Serious: No
  Sender: FDA-Public Use
  Company Number: None

PATIENT
  Sex: Female
  Weight: 59.87 kg

DRUGS (4)
  1. CAPECITABINE [Suspect]
     Active Substance: CAPECITABINE
     Indication: Colon cancer
     Dosage: FREQUENCY : TWICE A DAY;?
     Route: 048
  2. DEXAMETHASONE [Concomitant]
  3. OXALIPLATIN [Concomitant]
     Active Substance: OXALIPLATIN
  4. ZOFRAN [Concomitant]

REACTIONS (3)
  - Epistaxis [None]
  - White blood cell count decreased [None]
  - Therapy change [None]
